FAERS Safety Report 5900575-7 (Version None)
Quarter: 2008Q3

REPORT INFORMATION
  Report Type: 
  Country: None (occurrence: None)
  Receive Date: 20080926
  Receipt Date: 20080916
  Transmission Date: 20090109
  Serious: Yes (Other)
  Sender: FDA-Public Use
  Company Number: JP-PFIZER INC-2008070736

PATIENT
  Sex: Female

DRUGS (13)
  1. ZITHROMAX [Suspect]
     Indication: PYREXIA
     Route: 048
     Dates: start: 20080811, end: 20080813
  2. ZITHROMAX [Suspect]
     Indication: INFECTION
  3. BUFFERIN [Concomitant]
  4. MAGNESIUM OXIDE [Concomitant]
  5. DILTIAZEM HCL [Concomitant]
     Route: 048
  6. MUCOSTA [Concomitant]
     Route: 048
  7. PANALDINE [Concomitant]
     Route: 048
  8. SERMION [Concomitant]
     Route: 048
  9. LANIRAPID [Concomitant]
     Route: 048
  10. MUCODYNE [Concomitant]
     Route: 048
  11. CIMETIDINE [Concomitant]
     Route: 048
  12. TAKA-DIASTASE [Concomitant]
     Route: 048
  13. MAGNESIUM OXIDE [Concomitant]
     Route: 048

REACTIONS (2)
  - HALLUCINATION [None]
  - HALLUCINATION, AUDITORY [None]
